FAERS Safety Report 24016916 (Version 10)
Quarter: 2025Q4

REPORT INFORMATION
  Report Type: Spontaneous
  Country: EU (occurrence: EU)
  Receive Date: 20240626
  Receipt Date: 20251016
  Transmission Date: 20260117
  Serious: Yes (Hospitalization, Other)
  Sender: APELLIS PHARMACEUTICALS
  Company Number: EU-BIOVITRUM-2023-ES-017128

PATIENT

DRUGS (9)
  1. PEGCETACOPLAN [Suspect]
     Active Substance: PEGCETACOPLAN
     Indication: Paroxysmal nocturnal haemoglobinuria
     Dosage: 24-OCT-2023: THE HEMATOLOGIST DECIDED TO ADMINISTER PEGCETACOPLAN FOR 3 CONSECUTIVE DAYS.?1800 MG...
     Route: 058
     Dates: start: 20230111
  2. PEGCETACOPLAN [Suspect]
     Active Substance: PEGCETACOPLAN
     Dosage: AS THE PATIENT WAS ALREADY RECEIVING PEGCETACOPLAN EVERY 3 DAYS, AFTER RECEIVING THE 3 CONSECUTIV...
     Route: 058
     Dates: start: 2024
  3. PEGCETACOPLAN [Suspect]
     Active Substance: PEGCETACOPLAN
     Dosage: DAILY?3 CONSECUTIVE DAYS
     Route: 058
     Dates: start: 20240613, end: 20240615
  4. PEGCETACOPLAN [Suspect]
     Active Substance: PEGCETACOPLAN
     Dosage: 3 DAYS/WEEK (MONDAY WEDNESDAY AND FRIDAY)
     Route: 058
     Dates: start: 20240621
  5. PEGCETACOPLAN [Suspect]
     Active Substance: PEGCETACOPLAN
     Dosage: 3 DOSES OF PEGCETACOPLAN WOULD BE?ADMINISTERED ON CONSECUTIVE DAYS
     Route: 058
     Dates: start: 202410
  6. PEGCETACOPLAN [Suspect]
     Active Substance: PEGCETACOPLAN
     Dosage: TOLD THE PATIENT TO TAKE 3 DOSES OF PEGCETACOPLAN ON CONSECUTIVE DAYS
     Route: 058
     Dates: start: 20241125, end: 20250915
  7. FOLIC ACID [Concomitant]
     Active Substance: FOLIC ACID
     Indication: Product used for unknown indication
     Dosage: DAILY
  8. AMOXICILLIN [Concomitant]
     Active Substance: AMOXICILLIN
     Indication: Prophylaxis
     Dosage: 4 DAYS A WEEK
  9. LEVOFLOXACIN [Concomitant]
     Active Substance: LEVOFLOXACIN
     Indication: Prophylaxis
     Dosage: 1 DAYS A WEEK

REACTIONS (23)
  - Haemolysis [Recovering/Resolving]
  - COVID-19 [Recovered/Resolved]
  - Off label use [Not Recovered/Not Resolved]
  - Chest pain [Recovered/Resolved]
  - Influenza [Recovered/Resolved]
  - Leukocyturia [Recovering/Resolving]
  - Vomiting [Recovering/Resolving]
  - Oesophageal spasm [Recovering/Resolving]
  - Abdominal pain [Recovered/Resolved]
  - Pyrexia [Recovered/Resolved]
  - Ear pain [Recovering/Resolving]
  - Choluria [Recovered/Resolved]
  - Dysphagia [Recovered/Resolved]
  - Anaemia [Unknown]
  - Blood lactate dehydrogenase increased [Recovering/Resolving]
  - Blood bilirubin increased [Recovering/Resolving]
  - Haemoglobin decreased [Recovering/Resolving]
  - Fatigue [Recovered/Resolved]
  - Diarrhoea [Recovered/Resolved]
  - Chromaturia [Unknown]
  - Asthenia [Unknown]
  - Gene mutation [Unknown]
  - Renal impairment [Unknown]

NARRATIVE: CASE EVENT DATE: 20231001
